FAERS Safety Report 17616206 (Version 1)
Quarter: 2020Q1

REPORT INFORMATION
  Report Type: Spontaneous
  Country: US (occurrence: US)
  Receive Date: 20200331
  Receipt Date: 20200331
  Transmission Date: 20200409
  Serious: No
  Sender: FDA-Public Use
  Company Number: None

PATIENT
  Age: 54 Year
  Sex: Female

DRUGS (1)
  1. PALONOSETRON HCL IV SOL 0.25MG [Suspect]
     Active Substance: PALONOSETRON
     Dosage: ?          OTHER FREQUENCY:OTHER;?
     Route: 042
     Dates: start: 201912

REACTIONS (2)
  - Disease progression [None]
  - Therapy cessation [None]

NARRATIVE: CASE EVENT DATE: 20200331
